FAERS Safety Report 13667378 (Version 1)
Quarter: 2017Q2

REPORT INFORMATION
  Report Type: Spontaneous
  Country: ES (occurrence: ES)
  Receive Date: 20170620
  Receipt Date: 20170620
  Transmission Date: 20170830
  Serious: Yes (Hospitalization)
  Sender: FDA-Public Use
  Company Number: ES-ROCHE-1951089

PATIENT
  Age: 77 Year
  Sex: Female

DRUGS (5)
  1. RIBAVIRIN. [Suspect]
     Active Substance: RIBAVIRIN
     Indication: HEPATITIS C
     Dosage: WEIGHT-ADJUSTED
     Route: 065
  2. DARUNAVIR [Concomitant]
     Active Substance: DARUNAVIR
     Indication: HEPATITIS C
     Route: 065
  3. RIBAVIRIN. [Suspect]
     Active Substance: RIBAVIRIN
     Indication: HEPATITIS C
     Dosage: WAS ADJUSTED AT WEEK 8 OF THERAPY
     Route: 065
  4. LAMIVUDINE. [Concomitant]
     Active Substance: LAMIVUDINE
     Indication: HEPATITIS C
     Route: 065
  5. OMBITASVIR [Suspect]
     Active Substance: OMBITASVIR
     Indication: HEPATITIS C
     Route: 065

REACTIONS (2)
  - Haemoglobin decreased [Unknown]
  - Hepatitis E [Recovered/Resolved]
